FAERS Safety Report 10716827 (Version 3)
Quarter: 2015Q2

REPORT INFORMATION
  Report Type: Report from Study
  Country: CA (occurrence: CA)
  Receive Date: 20150116
  Receipt Date: 20150604
  Transmission Date: 20150821
  Serious: Yes (Other)
  Sender: FDA-Public Use
  Company Number: CA-JNJFOC-20150106236

PATIENT
  Sex: Male
  Weight: 50 kg

DRUGS (14)
  1. REMICADE [Suspect]
     Active Substance: INFLIXIMAB
     Indication: DIABETES MELLITUS
     Dosage: 8-10 WEEKS
     Route: 042
     Dates: start: 201009
  2. REMICADE [Suspect]
     Active Substance: INFLIXIMAB
     Indication: DIABETES MELLITUS
     Dosage: 52 WEEK
     Route: 042
     Dates: start: 2007
  3. TOPAMAX [Concomitant]
     Active Substance: TOPIRAMATE
     Route: 065
  4. JURNISTA [Concomitant]
     Active Substance: HYDROMORPHONE HYDROCHLORIDE
     Dosage: ONCE PM
     Route: 065
  5. REMICADE [Suspect]
     Active Substance: INFLIXIMAB
     Indication: BEHCET^S SYNDROME
     Dosage: 52 WEEK
     Route: 042
     Dates: start: 2007
  6. REMICADE [Suspect]
     Active Substance: INFLIXIMAB
     Indication: BEHCET^S SYNDROME
     Dosage: 8-10 WEEKS
     Route: 042
     Dates: start: 201009
  7. REMICADE [Suspect]
     Active Substance: INFLIXIMAB
     Indication: COLITIS ULCERATIVE
     Dosage: 8-10 WEEKS
     Route: 042
     Dates: start: 201009
  8. CYMBALTA [Concomitant]
     Active Substance: DULOXETINE HYDROCHLORIDE
     Route: 065
  9. REMICADE [Suspect]
     Active Substance: INFLIXIMAB
     Indication: COLITIS ULCERATIVE
     Dosage: 52 WEEK
     Route: 042
     Dates: start: 2007
  10. AMITRIPTYLINE [Concomitant]
     Active Substance: AMITRIPTYLINE
     Route: 065
  11. SANDOMIGRAN [Concomitant]
     Active Substance: PIZOTYLINE
     Route: 065
  12. JURNISTA [Concomitant]
     Active Substance: HYDROMORPHONE HYDROCHLORIDE
     Dosage: ONCE MORNING
     Route: 065
  13. LYRICA [Concomitant]
     Active Substance: PREGABALIN
     Route: 065
  14. NAPROXEN. [Concomitant]
     Active Substance: NAPROXEN
     Route: 065

REACTIONS (9)
  - Serum ferritin decreased [Unknown]
  - Swelling [Unknown]
  - Respiratory tract infection viral [Unknown]
  - Pain [Unknown]
  - Infection [Unknown]
  - Surgery [Unknown]
  - Product use issue [Unknown]
  - Lower respiratory tract infection [Unknown]
  - Fatigue [Unknown]
